FAERS Safety Report 10102336 (Version 3)
Quarter: 2014Q2

REPORT INFORMATION
  Report Type: Spontaneous
  Country: JP (occurrence: JP)
  Receive Date: 20140424
  Receipt Date: 20140519
  Transmission Date: 20141212
  Serious: Yes (Other)
  Sender: FDA-Public Use
  Company Number: JP-PFIZER INC-2014113099

PATIENT
  Age: 62 Year
  Sex: Male

DRUGS (2)
  1. ANCARON [Suspect]
     Indication: ATRIAL FIBRILLATION
     Dosage: 200 MG, DAILY
     Route: 048
     Dates: start: 20140129
  2. ANCARON [Suspect]
     Dosage: 100 MG, DAILY
     Route: 048
     Dates: start: 20140207

REACTIONS (1)
  - Blood potassium decreased [Recovered/Resolved]
